FAERS Safety Report 9226632 (Version 1)
Quarter: 2013Q2

REPORT INFORMATION
  Report Type: Spontaneous
  Country: FR (occurrence: FR)
  Receive Date: 20130412
  Receipt Date: 20130412
  Transmission Date: 20140414
  Serious: Yes (Hospitalization)
  Sender: FDA-Public Use
  Company Number: FR-PFIZER INC-2013111666

PATIENT
  Age: 51 Year
  Sex: Female

DRUGS (5)
  1. OLMETEC [Suspect]
     Indication: HYPERTENSION
     Dosage: UNK
     Route: 048
     Dates: end: 20130110
  2. SPIRONOLACTONE [Suspect]
     Dosage: UNK
     Route: 048
     Dates: end: 20130110
  3. XAGRID [Suspect]
     Indication: ESSENTIAL THROMBOCYTHAEMIA
     Dosage: 1 MG, 1X/DAY
     Route: 048
     Dates: start: 2003, end: 20130110
  4. KARDEGIC [Concomitant]
     Indication: PRODUCT USED FOR UNKNOWN INDICATION
     Dosage: UNK
     Route: 048
  5. ATENOLOL [Concomitant]
     Indication: PRODUCT USED FOR UNKNOWN INDICATION
     Dosage: UNK
     Route: 048

REACTIONS (5)
  - Renal failure acute [Recovered/Resolved]
  - Hyperkalaemia [Recovered/Resolved]
  - Bradycardia [Recovered/Resolved]
  - Haemoglobin decreased [Unknown]
  - Gastritis [Unknown]
